FAERS Safety Report 5279521-8 (Version None)
Quarter: 2007Q1

REPORT INFORMATION
  Report Type: 
  Country: None (occurrence: None)
  Receive Date: 20070328
  Receipt Date: 20070316
  Transmission Date: 20070707
  Serious: Yes (Other)
  Sender: FDA-Public Use
  Company Number: FR-PFIZER INC-2006148666

PATIENT
  Sex: Female

DRUGS (15)
  1. LYRICA [Suspect]
     Indication: NEURALGIA
  2. BUFLOMEDIL [Interacting]
  3. FUROSEMIDE [Concomitant]
  4. RILMENIDINE DIHYDROGEN PHOSPHATE [Concomitant]
  5. NICARDIPINE HYDROCHLORIDE [Concomitant]
  6. CLOPIDOGREL BISULFATE [Concomitant]
  7. VALSARTAN [Concomitant]
  8. ALFACALCIDOL [Concomitant]
  9. CLONAZEPAM [Concomitant]
  10. TRAMADOL HCL [Concomitant]
  11. HYDROXYZINE HYDROCHLORIDE [Concomitant]
  12. INSULIN [Concomitant]
  13. CLOBETASOL PROPIONATE [Concomitant]
  14. GLYCEROL 2.6% [Concomitant]
  15. POVIDONE [Concomitant]

REACTIONS (2)
  - DRUG INTERACTION [None]
  - TOXIC SKIN ERUPTION [None]
